FAERS Safety Report 9023945 (Version 1)
Quarter: 2013Q1

REPORT INFORMATION
  Report Type: Spontaneous
  Country: US (occurrence: US)
  Receive Date: 20130121
  Receipt Date: 20130121
  Transmission Date: 20140127
  Serious: No
  Sender: FDA-Public Use
  Company Number: US-PFIZER INC-2013019927

PATIENT
  Age: 59 Year
  Sex: Female
  Weight: 121.54 kg

DRUGS (5)
  1. FLAGYL [Suspect]
  2. DOXYCYCLINE HYCLATE [Suspect]
  3. CIPROFLOXACIN [Suspect]
  4. PRINIVIL [Suspect]
  5. FLEXERIL [Suspect]

REACTIONS (1)
  - Hypersensitivity [Unknown]
